FAERS Safety Report 4285173-6 (Version None)
Quarter: 2004Q1

REPORT INFORMATION
  Report Type: 
  Country: None (occurrence: None)
  Receive Date: 20040203
  Receipt Date: 20040203
  Transmission Date: 20041129
  Serious: Yes (Hospitalization)
  Sender: FDA-Public Use
  Company Number: None

PATIENT
  Sex: Female
  Weight: 52.5 kg

DRUGS (1)
  1. REMINYL [Suspect]
     Indication: DEMENTIA
     Dosage: 12 MG PO BID; STARTED @ 4MG BID 21OCT03 WITH QMO TITRATION TO 12MG BID
     Route: 048
     Dates: start: 20031021

REACTIONS (1)
  - PNEUMONIA [None]
